FAERS Safety Report 6662151-0 (Version None)
Quarter: 2010Q1

REPORT INFORMATION
  Report Type: 
  Country: None (occurrence: None)
  Receive Date: 20100331
  Receipt Date: 20100324
  Transmission Date: 20100710
  Serious: Yes (Other)
  Sender: FDA-Public Use
  Company Number: US-BAXTER-2010BH008108

PATIENT
  Age: 55 Year
  Sex: Female

DRUGS (4)
  1. PHENYLEPHRINE HYDROCHLORIDE [Suspect]
     Indication: HYPOTENSION
     Route: 042
  2. PHENYLEPHRINE HYDROCHLORIDE [Suspect]
     Route: 042
  3. PHENYLEPHRINE HYDROCHLORIDE [Suspect]
     Route: 042
  4. HYDROCORTISONE [Concomitant]
     Indication: HYPOTENSION
     Route: 040

REACTIONS (1)
  - ATRIOVENTRICULAR BLOCK SECOND DEGREE [None]
